FAERS Safety Report 14181357 (Version 17)
Quarter: 2018Q2

REPORT INFORMATION
  Report Type: Spontaneous
  Country: US (occurrence: US)
  Receive Date: 20171113
  Receipt Date: 20180420
  Transmission Date: 20180711
  Serious: Yes (Hospitalization, Congenital Anomaly, Other)
  Sender: FDA-Public Use
  Company Number: PHEH2017US036605

PATIENT
  Age: 3 Month
  Sex: Female

DRUGS (2)
  1. ONDANSETRON [Suspect]
     Active Substance: ONDANSETRON
     Indication: FOETAL EXPOSURE DURING PREGNANCY
     Dosage: MOTHER^S DOSE: 08 MG, Q12H
     Route: 064
  2. ZOFRAN [Suspect]
     Active Substance: ONDANSETRON HYDROCHLORIDE
     Indication: FOETAL EXPOSURE DURING PREGNANCY
     Route: 064

REACTIONS (57)
  - Left-to-right cardiac shunt [Unknown]
  - Speech disorder [Unknown]
  - Upper respiratory tract infection [Unknown]
  - Dysuria [Unknown]
  - Cleft palate [Unknown]
  - Pharyngotonsillitis [Unknown]
  - Nausea [Unknown]
  - Otitis media [Unknown]
  - Molluscum contagiosum [Unknown]
  - Arthralgia [Unknown]
  - Nasal congestion [Unknown]
  - Ear pain [Unknown]
  - Cyanosis neonatal [Unknown]
  - Ear infection [Unknown]
  - Pain [Unknown]
  - Oral pain [Unknown]
  - Decreased appetite [Unknown]
  - Atrial septal defect [Unknown]
  - Abdominal pain upper [Unknown]
  - Eustachian tube dysfunction [Unknown]
  - Fall [Unknown]
  - Limb injury [Unknown]
  - Rhinorrhoea [Unknown]
  - Torticollis [Unknown]
  - Oropharyngeal pain [Unknown]
  - Nasal turbinate hypertrophy [Unknown]
  - Strabismus [Unknown]
  - Cough [Unknown]
  - Pyrexia [Unknown]
  - Constipation [Unknown]
  - Heart disease congenital [Unknown]
  - Meningitis viral [Unknown]
  - Migraine [Unknown]
  - Vomiting [Unknown]
  - Pollakiuria [Unknown]
  - Fatigue [Unknown]
  - Pain in extremity [Unknown]
  - Hypersomnia [Unknown]
  - Pharyngitis [Unknown]
  - Joint injury [Unknown]
  - Ventricular septal defect [Unknown]
  - Pruritus [Unknown]
  - Eye discharge [Unknown]
  - Acute sinusitis [Unknown]
  - Vision blurred [Unknown]
  - Dizziness [Unknown]
  - Abdominal pain [Unknown]
  - Kidney infection [Unknown]
  - Foetal exposure during pregnancy [Unknown]
  - Headache [Unknown]
  - Selective eating disorder [Unknown]
  - Gastrooesophageal reflux disease [Recovered/Resolved]
  - Velopharyngeal incompetence [Unknown]
  - Rhinitis allergic [Unknown]
  - Dyspnoea [Unknown]
  - Cardiac murmur [Unknown]
  - Eye pain [Unknown]

NARRATIVE: CASE EVENT DATE: 200902
